FAERS Safety Report 23020585 (Version 5)
Quarter: 2024Q1

REPORT INFORMATION
  Report Type: Report from Study
  Country: BR (occurrence: None)
  Receive Date: 20231003
  Receipt Date: 20240304
  Transmission Date: 20240409
  Serious: Yes (Life-Threatening, Hospitalization)
  Sender: FDA-Public Use
  Company Number: 2023A223491

PATIENT
  Age: 19555 Day
  Sex: Female
  Weight: 88 kg

DRUGS (19)
  1. FASENRA [Suspect]
     Active Substance: BENRALIZUMAB
     Indication: Asthma
     Route: 058
     Dates: start: 202209
  2. CEFTRIAXONE SODIUM [Concomitant]
     Active Substance: CEFTRIAXONE SODIUM
     Dosage: ONCE A DAY FOR 10 DAYS
  3. LOSARTAN [Concomitant]
     Active Substance: LOSARTAN
  4. AMLODIPINE [Concomitant]
     Active Substance: AMLODIPINE BESYLATE
  5. PURAN [Concomitant]
     Active Substance: LEVOTHYROXINE SODIUM
  6. SIMVASTATIN [Concomitant]
     Active Substance: SIMVASTATIN
  7. HYDRALAZINE [Concomitant]
     Active Substance: HYDRALAZINE HYDROCHLORIDE
  8. PREDNISOLONE [Concomitant]
     Active Substance: PREDNISOLONE
  9. SPIRONOLACTONE [Concomitant]
     Active Substance: SPIRONOLACTONE
  10. NPH INSULIN [Concomitant]
     Active Substance: INSULIN BEEF
  11. ACETAMINOPHEN\CODEINE PHOSPHATE [Concomitant]
     Active Substance: ACETAMINOPHEN\CODEINE PHOSPHATE
  12. GABAPENTIN [Concomitant]
     Active Substance: GABAPENTIN
  13. AMITRIPTYLINE HYDROCHLORIDE [Concomitant]
     Active Substance: AMITRIPTYLINE HYDROCHLORIDE
  14. SERTRALINE [Concomitant]
     Active Substance: SERTRALINE HYDROCHLORIDE
  15. TIOTROPIUM [Concomitant]
     Active Substance: TIOTROPIUM
  16. SALMETAROL+FLUTICASONE [Concomitant]
  17. XARELTO [Concomitant]
     Active Substance: RIVAROXABAN
  18. BACTRIM S [Concomitant]
  19. INSULIN NOS [Concomitant]
     Active Substance: INSULIN NOS

REACTIONS (15)
  - Aspiration [Unknown]
  - Asthmatic crisis [Recovering/Resolving]
  - Thrombosis [Unknown]
  - Blood glucose increased [Unknown]
  - Pyrexia [Unknown]
  - Phlebitis [Unknown]
  - Inappropriate schedule of product administration [Unknown]
  - Cardiac disorder [Unknown]
  - Illness [Unknown]
  - Pain in extremity [Not Recovered/Not Resolved]
  - Weight decreased [Unknown]
  - Vomiting [Unknown]
  - Diarrhoea [Unknown]
  - Feeling abnormal [Unknown]
  - Cough [Unknown]

NARRATIVE: CASE EVENT DATE: 20230915
